FAERS Safety Report 22648525 (Version 3)
Quarter: 2024Q1

REPORT INFORMATION
  Report Type: Spontaneous
  Country: US (occurrence: US)
  Receive Date: 20230628
  Receipt Date: 20240131
  Transmission Date: 20240410
  Serious: No
  Sender: FDA-Public Use
  Company Number: US-SA-SAC20230627000531

PATIENT
  Age: 57 Year
  Sex: Female

DRUGS (4)
  1. DUPIXENT [Suspect]
     Active Substance: DUPILUMAB
     Indication: Dermatitis atopic
     Dosage: 300 MG, QOW
     Route: 058
     Dates: start: 20230411
  2. CALCIUM [Concomitant]
     Active Substance: CALCIUM
     Dosage: UNK
  3. COLLAGEN [Concomitant]
     Active Substance: COLLAGEN
     Dosage: UNK
  4. FISH OIL [Concomitant]
     Active Substance: FISH OIL
     Dosage: UNK

REACTIONS (5)
  - Sleep disorder [Unknown]
  - Pruritus [Unknown]
  - Product preparation error [Unknown]
  - Product dose omission in error [Unknown]
  - Inappropriate schedule of product administration [Unknown]

NARRATIVE: CASE EVENT DATE: 20230101
